FAERS Safety Report 14480770 (Version 7)
Quarter: 2018Q2

REPORT INFORMATION
  Report Type: Report from Study
  Country: KR (occurrence: KR)
  Receive Date: 20180202
  Receipt Date: 20180502
  Transmission Date: 20180711
  Serious: Yes (Hospitalization)
  Sender: FDA-Public Use
  Company Number: KR-EISAI MEDICAL RESEARCH-EC-2018-035620

PATIENT
  Age: 45 Year
  Sex: Female
  Weight: 49 kg

DRUGS (17)
  1. HYALU MINI [Concomitant]
  2. TACENOL [Concomitant]
  3. LAMOTRIGIN [Suspect]
     Active Substance: LAMOTRIGINE
     Indication: BACK PAIN
     Route: 048
     Dates: start: 20171219, end: 20180125
  4. ZOLPID [Concomitant]
  5. LENVATINIB [Suspect]
     Active Substance: LENVATINIB
     Route: 048
     Dates: start: 20180109, end: 20180110
  6. CEFAZOLIN [Concomitant]
     Active Substance: CEFAZOLIN
  7. LIV-GAMMA SN [Concomitant]
  8. LENVATINIB [Suspect]
     Active Substance: LENVATINIB
     Indication: RENAL CELL CARCINOMA
     Route: 048
     Dates: start: 20171219, end: 20171229
  9. LENVATINIB [Suspect]
     Active Substance: LENVATINIB
     Route: 048
     Dates: start: 20180119, end: 20180125
  10. CHLORPHENIRAMINE MALEATE. [Concomitant]
     Active Substance: CHLORPHENIRAMINE MALEATE
  11. DEXAMETHASONE. [Concomitant]
     Active Substance: DEXAMETHASONE
  12. PEMBROLIZUMAB. [Suspect]
     Active Substance: PEMBROLIZUMAB
     Indication: RENAL CELL CARCINOMA
     Route: 041
     Dates: start: 20171219, end: 20171219
  13. PETHIDINE [Concomitant]
     Active Substance: MEPERIDINE
  14. GASTER [Concomitant]
     Active Substance: FAMOTIDINE
  15. SOLONDO [Concomitant]
     Active Substance: PREDNISOLONE
  16. FEXONADINE [Concomitant]
  17. CRAVIT [Concomitant]
     Active Substance: LEVOFLOXACIN

REACTIONS (2)
  - Toxic epidermal necrolysis [Recovered/Resolved]
  - Rash generalised [Recovered/Resolved]

NARRATIVE: CASE EVENT DATE: 20180124
